FAERS Safety Report 23528043 (Version 1)
Quarter: 2024Q1

REPORT INFORMATION
  Report Type: Spontaneous
  Country: CH (occurrence: CH)
  Receive Date: 20240215
  Receipt Date: 20240215
  Transmission Date: 20240410
  Serious: Yes (Other)
  Sender: FDA-Public Use
  Company Number: CH-TAKEDA-2024TUS014388

PATIENT
  Age: 76 Year
  Sex: Male
  Weight: 69 kg

DRUGS (5)
  1. FEBUXOSTAT [Suspect]
     Active Substance: FEBUXOSTAT
     Indication: Hyperuricaemia
     Dosage: UNK
     Route: 048
  2. REPATHA [Suspect]
     Active Substance: EVOLOCUMAB
     Indication: Dyslipidaemia
     Dosage: 140 MILLIGRAM, 2/MONTH
     Route: 058
     Dates: start: 20230930, end: 20231130
  3. VALSARTAN [Suspect]
     Active Substance: VALSARTAN
     Indication: Hypertension
     Dosage: UNK
     Route: 048
  4. LERCANIDIPINE [Suspect]
     Active Substance: LERCANIDIPINE
     Indication: Hypertension
     Dosage: UNK
     Route: 048
  5. CARDIAX [Concomitant]
     Indication: Cardiovascular event prophylaxis
     Dosage: UNK
     Route: 048

REACTIONS (2)
  - Polymyalgia rheumatica [Recovered/Resolved]
  - Myalgia [Recovered/Resolved]

NARRATIVE: CASE EVENT DATE: 20231001
